FAERS Safety Report 4980169-0 (Version None)
Quarter: 2006Q2

REPORT INFORMATION
  Report Type: 
  Country: None (occurrence: None)
  Receive Date: 20060424
  Receipt Date: 20060413
  Transmission Date: 20061013
  Serious: Yes (Death)
  Sender: FDA-Public Use
  Company Number: US-JNJFOC-20060403358

PATIENT
  Sex: Female
  Weight: 80.74 kg

DRUGS (10)
  1. REMICADE [Suspect]
     Indication: RHEUMATOID ARTHRITIS
     Route: 042
  2. CYCLOBENZAPRINE HCL [Concomitant]
  3. DETROL [Concomitant]
  4. VERAPAMIL [Concomitant]
  5. PREDNISONE [Concomitant]
  6. ARAVA [Concomitant]
  7. ULTRACET [Concomitant]
  8. LESCOL [Concomitant]
  9. METOCLOPRAMIDE [Concomitant]
  10. FUROSEMIDE [Concomitant]

REACTIONS (2)
  - NEOPLASM MALIGNANT [None]
  - UTERINE CANCER [None]
